FAERS Safety Report 24790700 (Version 1)
Quarter: 2024Q4

REPORT INFORMATION
  Report Type: Spontaneous
  Country: US (occurrence: US)
  Receive Date: 20241230
  Receipt Date: 20241230
  Transmission Date: 20250115
  Serious: Yes (Other)
  Sender: BAUSCH AND LOMB
  Company Number: US-BAUSCH-BL-2024-018794

PATIENT
  Sex: Male

DRUGS (1)
  1. IPRATROPIUM BROMIDE [Suspect]
     Active Substance: IPRATROPIUM BROMIDE
     Indication: Hypersensitivity
     Route: 065
     Dates: start: 2023

REACTIONS (3)
  - Choking [Not Recovered/Not Resolved]
  - Oropharyngeal discomfort [Unknown]
  - Wrong technique in product usage process [Unknown]
